FAERS Safety Report 5210279-4 (Version None)
Quarter: 2007Q1

REPORT INFORMATION
  Report Type: 
  Country: None (occurrence: None)
  Receive Date: 20070112
  Receipt Date: 20070112
  Transmission Date: 20070707
  Serious: Yes (Death, Life-Threatening, Hospitalization, Other)
  Sender: FDA-Public Use
  Company Number: None

PATIENT
  Age: 27 Year
  Sex: Male

DRUGS (3)
  1. ELAVIL [Suspect]
     Dosage: DOSE UNKNOWN   AT BEDTIME   ORAL   (DURATION: ONE DOSE )
     Route: 048
     Dates: start: 20041101
  2. METHADONE [Suspect]
     Indication: ARTHRALGIA
     Dosage: ? DOSE - TOTAL OF 3  TABLETS A DAY ORAL
     Route: 048
     Dates: start: 20041101, end: 20050123
  3. LEXAPRO [Concomitant]

REACTIONS (2)
  - ACCIDENTAL OVERDOSE [None]
  - RESPIRATORY ARREST [None]
